FAERS Safety Report 24809343 (Version 1)
Quarter: 2025Q1

REPORT INFORMATION
  Report Type: Spontaneous
  Country: US (occurrence: US)
  Receive Date: 20250106
  Receipt Date: 20250106
  Transmission Date: 20250408
  Serious: Yes (Death, Other)
  Sender: JOHNSON AND JOHNSON
  Company Number: US-JNJFOC-20250100722

PATIENT
  Age: 81 Year
  Sex: Male

DRUGS (6)
  1. REMICADE [Suspect]
     Active Substance: INFLIXIMAB
     Indication: Immune-mediated enterocolitis
     Route: 041
  2. REMICADE [Suspect]
     Active Substance: INFLIXIMAB
     Indication: Cytomegalovirus colitis
  3. FIDAXOMICIN [Suspect]
     Active Substance: FIDAXOMICIN
     Indication: Clostridium difficile infection
     Route: 065
  4. NIVOLUMAB [Concomitant]
     Active Substance: NIVOLUMAB
     Indication: Metastatic malignant melanoma
  5. RELATLIMAB [Concomitant]
     Active Substance: RELATLIMAB
     Indication: Metastatic malignant melanoma
  6. PREDNISONE [Concomitant]
     Active Substance: PREDNISONE
     Indication: Immune-mediated enterocolitis

REACTIONS (4)
  - Multiple organ dysfunction syndrome [Fatal]
  - General physical health deterioration [Fatal]
  - Clostridium difficile infection [Not Recovered/Not Resolved]
  - Off label use [Unknown]
